FAERS Safety Report 6007767-X (Version None)
Quarter: 2008Q4

REPORT INFORMATION
  Report Type: 
  Country: None (occurrence: None)
  Receive Date: 20081217
  Receipt Date: 20080602
  Transmission Date: 20090506
  Serious: No
  Sender: FDA-Public Use
  Company Number: US-ASTRAZENECA-2008UW11051

PATIENT
  Age: 50 Year
  Sex: Male

DRUGS (3)
  1. CRESTOR [Suspect]
     Indication: BLOOD CHOLESTEROL INCREASED
     Route: 048
     Dates: start: 20071220, end: 20080201
  2. VERAPAMIL [Concomitant]
  3. CARTIA XT [Concomitant]

REACTIONS (4)
  - ARTHRALGIA [None]
  - HUNGER [None]
  - PAIN [None]
  - WEIGHT INCREASED [None]
